FAERS Safety Report 5034327-X (Version None)
Quarter: 2006Q2

REPORT INFORMATION
  Report Type: 
  Country: None (occurrence: None)
  Receive Date: 20060620
  Receipt Date: 20060607
  Transmission Date: 20061013
  Serious: Yes (Death)
  Sender: FDA-Public Use
  Company Number: 2006053881

PATIENT
  Age: 77 Year
  Sex: Male

DRUGS (11)
  1. IRINOTECAN HCL [Suspect]
     Indication: COLON CANCER
     Dosage: 100 MG (100 MG, DAILY), INTRAVENOUS
     Route: 042
     Dates: start: 20060330, end: 20060330
  2. TEGAFUR/GIMERACIL/OTERACIL POTASSIUM (TEGAFUR/GIMERACIL/OTERACIL POTAS [Suspect]
     Indication: COLON CANCER
     Dosage: 80 MG (40 MG, 2 IN 1 D), ORAL
     Route: 048
     Dates: start: 20060330, end: 20060402
  3. MUCOSTA (REBAMIPIDE) [Concomitant]
  4. MAGNESIUM OXIDE (MAGNESIUM OXIDE) [Concomitant]
  5. MORPHINE [Concomitant]
  6. FENTANYL [Concomitant]
  7. MOBIC [Concomitant]
  8. PRIMPERAN TAB [Concomitant]
  9. DOGMATYL (SULPIRIDE) [Concomitant]
  10. LANSOPRAZOLE [Concomitant]
  11. JUSO (SODIUM BICARBONATE) [Concomitant]

REACTIONS (17)
  - ABNORMAL BEHAVIOUR [None]
  - ABNORMAL FAECES [None]
  - ACUTE RESPIRATORY DISTRESS SYNDROME [None]
  - ANOREXIA [None]
  - BLOOD PRESSURE IMMEASURABLE [None]
  - CANCER PAIN [None]
  - CARDIAC ARREST [None]
  - CONDITION AGGRAVATED [None]
  - DIARRHOEA [None]
  - HEART RATE DECREASED [None]
  - INCOHERENT [None]
  - INTERSTITIAL LUNG DISEASE [None]
  - METASTASES TO SPINE [None]
  - MYDRIASIS [None]
  - PLEURAL EFFUSION [None]
  - RESPIRATORY ARREST [None]
  - RESPIRATORY RATE INCREASED [None]
